FAERS Safety Report 8905022 (Version 1)
Quarter: 2012Q4

REPORT INFORMATION
  Report Type: Report from Study
  Country: JP (occurrence: JP)
  Receive Date: 20121111
  Receipt Date: 20121111
  Transmission Date: 20130627
  Serious: Yes (Hospitalization)
  Sender: FDA-Public Use
  Company Number: JP-009507513-1211JPN001779

PATIENT
  Age: 64 Year
  Sex: Female
  Weight: 53 kg

DRUGS (3)
  1. PEGINTRON [Suspect]
     Indication: HEPATITIS C
     Dosage: 1.5 ug/ kg, qw
     Route: 058
     Dates: start: 20120906, end: 20120919
  2. REBETOL [Suspect]
     Indication: HEPATITIS C
     Dosage: 600 mg, qd
     Route: 048
     Dates: start: 20120906, end: 20120921
  3. TELAVIC [Suspect]
     Indication: HEPATITIS C
     Dosage: 1500 mg, qd
     Route: 048
     Dates: start: 20120906, end: 20120921

REACTIONS (2)
  - Anaemia [Recovering/Resolving]
  - Malaise [Recovering/Resolving]
